FAERS Safety Report 5618653-9 (Version None)
Quarter: 2008Q1

REPORT INFORMATION
  Report Type: 
  Country: None (occurrence: None)
  Receive Date: 20080207
  Receipt Date: 20080204
  Transmission Date: 20080703
  Serious: Yes (Other)
  Sender: FDA-Public Use
  Company Number: SE-JNJFOC-20080200383

PATIENT
  Age: 28 Year
  Sex: Male

DRUGS (2)
  1. CONCERTA [Suspect]
     Route: 048
  2. CONCERTA [Suspect]
     Indication: DRUG USE FOR UNKNOWN INDICATION
     Dosage: 1 MONTHS AGO
     Route: 048

REACTIONS (6)
  - AMNESIA [None]
  - APATHY [None]
  - MALAISE [None]
  - POISONING [None]
  - SLEEP DISORDER [None]
  - SUICIDAL IDEATION [None]
